FAERS Safety Report 15292546 (Version 1)
Quarter: 2018Q3

REPORT INFORMATION
  Report Type: Spontaneous
  Country: FR (occurrence: FR)
  Receive Date: 20180818
  Receipt Date: 20180818
  Transmission Date: 20181010
  Serious: Yes (Death, Other)
  Sender: FDA-Public Use
  Company Number: FR-TEVA-2018-FR-941561

PATIENT
  Age: 67 Year
  Sex: Female

DRUGS (2)
  1. IFOSFAMIDE. [Interacting]
     Active Substance: IFOSFAMIDE
     Indication: SARCOMA
     Dates: start: 20131127, end: 20140108
  2. DOXORUBICINE [Suspect]
     Active Substance: DOXORUBICIN
     Indication: SARCOMA
     Dates: start: 20131127, end: 20140108

REACTIONS (4)
  - Drug interaction [Unknown]
  - Haemoptysis [Fatal]
  - Thrombocytopenia [Fatal]
  - Anaemia [Fatal]

NARRATIVE: CASE EVENT DATE: 20140117
